FAERS Safety Report 6927945-2 (Version None)
Quarter: 2010Q3

REPORT INFORMATION
  Report Type: 
  Country: None (occurrence: None)
  Receive Date: 20100817
  Receipt Date: 20100809
  Transmission Date: 20110219
  Serious: Yes (Other)
  Sender: FDA-Public Use
  Company Number: US-ELI_LILLY_AND_COMPANY-US201002004008

PATIENT
  Sex: Female
  Weight: 117.91 kg

DRUGS (2)
  1. BYETTA [Suspect]
     Dosage: UNK, UNKNOWN
     Route: 065
     Dates: start: 20070101, end: 20080101
  2. METFORMIN HCL [Concomitant]
     Dosage: 500 MG, UNKNOWN

REACTIONS (1)
  - PANCREATITIS [None]
